FAERS Safety Report 25302164 (Version 1)
Quarter: 2025Q2

REPORT INFORMATION
  Report Type: Spontaneous
  Country: GB (occurrence: GB)
  Receive Date: 20250512
  Receipt Date: 20250512
  Transmission Date: 20250717
  Serious: Yes (Disabling, Other)
  Sender: CIPLA
  Company Number: GB-MHRA-MED-202504300930339750-TVWGF

PATIENT

DRUGS (1)
  1. FINASTERIDE [Suspect]
     Active Substance: FINASTERIDE
     Indication: Alopecia
     Route: 065

REACTIONS (4)
  - Peyronie^s disease [Not Recovered/Not Resolved]
  - Anorgasmia [Not Recovered/Not Resolved]
  - Loss of libido [Not Recovered/Not Resolved]
  - Penis disorder [Not Recovered/Not Resolved]
